FAERS Safety Report 17501800 (Version 6)
Quarter: 2024Q3

REPORT INFORMATION
  Report Type: Spontaneous
  Country: US (occurrence: US)
  Receive Date: 20200305
  Receipt Date: 20240905
  Transmission Date: 20241017
  Serious: Yes (Other)
  Sender: PFIZER
  Company Number: US-PFIZER INC-2020098477

PATIENT
  Age: 71 Year
  Sex: Female

DRUGS (3)
  1. XELJANZ XR [Suspect]
     Active Substance: TOFACITINIB CITRATE
     Dosage: 11 MG
  2. CALCIUM [Concomitant]
     Active Substance: CALCIUM
     Dosage: UNK
  3. PROLIA [Concomitant]
     Active Substance: DENOSUMAB

REACTIONS (5)
  - Lower respiratory tract infection [Unknown]
  - Nervousness [Unknown]
  - Hypotension [Unknown]
  - Herpes zoster [Unknown]
  - Blood cholesterol increased [Unknown]
